FAERS Safety Report 6041660-1 (Version None)
Quarter: 2009Q1

REPORT INFORMATION
  Report Type: 
  Country: None (occurrence: None)
  Receive Date: 20090116
  Receipt Date: 20081030
  Transmission Date: 20090719
  Serious: No
  Sender: FDA-Public Use
  Company Number: US-BRISTOL-MYERS SQUIBB COMPANY-14390215

PATIENT
  Age: 12 Year
  Sex: Male

DRUGS (5)
  1. ABILIFY [Suspect]
     Indication: BIPOLAR DISORDER
     Route: 048
     Dates: end: 20081001
  2. ABILIFY [Suspect]
     Indication: DEPRESSION
     Route: 048
     Dates: end: 20081001
  3. LAMICTAL [Concomitant]
  4. BUSPAR [Concomitant]
  5. SEROQUEL [Concomitant]

REACTIONS (1)
  - MOOD SWINGS [None]
